FAERS Safety Report 8117155-8 (Version None)
Quarter: 2012Q1

REPORT INFORMATION
  Report Type: 
  Country: None (occurrence: None)
  Receive Date: 20120206
  Receipt Date: 20120126
  Transmission Date: 20120608
  Serious: Yes (Disabling)
  Sender: FDA-Public Use
  Company Number: GB-ASTRAZENECA-2011SE40828

PATIENT
  Age: 72 Year
  Sex: Female

DRUGS (2)
  1. ARIMIDEX [Suspect]
     Indication: BREAST CANCER
     Route: 048
     Dates: start: 20110301, end: 20110601
  2. TEMAZEPAM [Concomitant]
     Route: 048

REACTIONS (3)
  - HYPERHIDROSIS [None]
  - ARTHRALGIA [None]
  - LOSS OF CONSCIOUSNESS [None]
